FAERS Safety Report 16056150 (Version 1)
Quarter: 2019Q2

REPORT INFORMATION
  Report Type: Spontaneous
  Country: US (occurrence: US)
  Receive Date: 20190308
  Receipt Date: 20190308
  Transmission Date: 20190711
  Serious: Yes (Life-Threatening, Hospitalization, Disabling, Other)
  Sender: FDA-Public Use
  Company Number: None

PATIENT
  Age: 74 Year
  Sex: Female
  Weight: 63.9 kg

DRUGS (1)
  1. BENICAR [Suspect]
     Active Substance: OLMESARTAN MEDOXOMIL
     Indication: HYPERTENSION
     Dosage: ?          QUANTITY:1 TABLET(S);?
     Route: 048
     Dates: start: 20150215, end: 20161030

REACTIONS (10)
  - Starvation [None]
  - Diarrhoea [None]
  - Dehydration [None]
  - Blood pressure decreased [None]
  - Vomiting [None]
  - Microvillous inclusion disease [None]
  - Electrolyte depletion [None]
  - Coeliac disease [None]
  - Oedema [None]
  - Weight decreased [None]

NARRATIVE: CASE EVENT DATE: 20160815
